FAERS Safety Report 9213579 (Version 3)
Quarter: 2013Q2

REPORT INFORMATION
  Report Type: Report from Study
  Country: US (occurrence: US)
  Receive Date: 20130405
  Receipt Date: 20130625
  Transmission Date: 20140414
  Serious: Yes (Life-Threatening, Hospitalization, Other)
  Sender: FDA-Public Use
  Company Number: US-PURDUE-USA-2013-0100489

PATIENT
  Age: 31 Year
  Sex: Female

DRUGS (3)
  1. OXYCONTIN (NDA 22-272) [Suspect]
     Indication: COMPLEX REGIONAL PAIN SYNDROME
     Dosage: 60 MG, 3 TABS A.M AND 4 TABS P.M
     Route: 048
  2. OXYCONTIN (NDA 22-272) [Suspect]
     Dosage: 60 MG, Q12H
     Route: 048
  3. OXYCONTIN (NDA 22-272) [Suspect]
     Dosage: 1 Q.A.M + 1 TO 2 Q.P.M
     Route: 048

REACTIONS (10)
  - Multi-organ failure [Unknown]
  - Meningitis bacterial [Unknown]
  - Pneumonia [Unknown]
  - Haematemesis [Unknown]
  - Malaise [Unknown]
  - Nightmare [Recovered/Resolved]
  - Drug withdrawal syndrome [Recovered/Resolved]
  - Tremor [Recovered/Resolved]
  - Hyperhidrosis [Recovered/Resolved]
  - Drug detoxification [Unknown]
